FAERS Safety Report 14660359 (Version 1)
Quarter: 2018Q1

REPORT INFORMATION
  Report Type: Spontaneous
  Country: US (occurrence: US)
  Receive Date: 20180320
  Receipt Date: 20180320
  Transmission Date: 20180509
  Serious: No
  Sender: FDA-Public Use
  Company Number: US-009507513-1803USA007939

PATIENT
  Sex: Female

DRUGS (8)
  1. HYDROCODONE [Concomitant]
     Active Substance: HYDROCODONE
  2. XANAX [Concomitant]
     Active Substance: ALPRAZOLAM
  3. ADVAIR HFA [Concomitant]
     Active Substance: FLUTICASONE PROPIONATE\SALMETEROL XINAFOATE
  4. MONTELUKAST [Concomitant]
     Active Substance: MONTELUKAST SODIUM
  5. PROVENTIL [Suspect]
     Active Substance: ALBUTEROL
     Indication: ASTHMA
     Dosage: UNK, PRN (AS NEEDED): ROUTE: ORAL INHALATION
  6. PROAIR HFA [Concomitant]
     Active Substance: ALBUTEROL SULFATE
  7. CARVEDILOL. [Concomitant]
     Active Substance: CARVEDILOL
  8. ESZOPICLONE. [Concomitant]
     Active Substance: ESZOPICLONE

REACTIONS (2)
  - Expired product administered [Unknown]
  - Memory impairment [Not Recovered/Not Resolved]
